FAERS Safety Report 4668506-8 (Version None)
Quarter: 2005Q2

REPORT INFORMATION
  Report Type: 
  Country: None (occurrence: None)
  Receive Date: 20050518
  Receipt Date: 20050428
  Transmission Date: 20051028
  Serious: Yes (Other)
  Sender: FDA-Public Use
  Company Number: B0379971A

PATIENT
  Sex: Male

DRUGS (3)
  1. ZYBAN [Suspect]
     Indication: EX-SMOKER
     Dosage: 150 MG/TWICE PER DAY
     Dates: start: 20050101, end: 20050401
  2. INSULIN [Concomitant]
  3. ATORVASTATIN CALCIUM [Concomitant]

REACTIONS (2)
  - BLINDNESS [None]
  - PALPITATIONS [None]
